FAERS Safety Report 12671586 (Version 1)
Quarter: 2016Q3

REPORT INFORMATION
  Report Type: Spontaneous
  Country: US (occurrence: None)
  Receive Date: 20160819
  Receipt Date: 20160819
  Transmission Date: 20161109
  Serious: Yes (Death)
  Sender: FDA-Public Use
  Company Number: None

PATIENT
  Age: 61 Year
  Sex: Male
  Weight: 67.36 kg

DRUGS (15)
  1. SULFAMETHOXAMOLE-TRIMETHOPRIM [Concomitant]
  2. CETUXIMAB [Suspect]
     Active Substance: CETUXIMAB
     Route: 042
     Dates: start: 20160114, end: 20160628
  3. FOSAMAX [Concomitant]
     Active Substance: ALENDRONATE SODIUM
  4. PALBOCICLIB [Suspect]
     Active Substance: PALBOCICLIB
     Dosage: DATS 1-31 00/OF 28 DAYS
     Route: 048
     Dates: start: 20160114, end: 20160703
  5. BUPROPION. [Concomitant]
     Active Substance: BUPROPION
  6. HYDROCODONE-ACETAMINOPHEN [Concomitant]
     Active Substance: ACETAMINOPHEN\HYDROCODONE
  7. MINOCYCLINE [Concomitant]
     Active Substance: MINOCYCLINE\MINOCYCLINE HYDROCHLORIDE
  8. TAMSULOSIN [Concomitant]
     Active Substance: TAMSULOSIN
  9. OXYCODONE [Concomitant]
     Active Substance: OXYCODONE
  10. CEVIMELINE. [Concomitant]
     Active Substance: CEVIMELINE
  11. PREDNISONE. [Concomitant]
     Active Substance: PREDNISONE
  12. FENTANYL. [Concomitant]
     Active Substance: FENTANYL
  13. LYRICA [Concomitant]
     Active Substance: PREGABALIN
  14. ZOLPIDEM [Concomitant]
     Active Substance: ZOLPIDEM\ZOLPIDEM TARTRATE
  15. FAMOTIDINE. [Concomitant]
     Active Substance: FAMOTIDINE

REACTIONS (10)
  - Fall [None]
  - Sinus tachycardia [None]
  - Pseudomonas infection [None]
  - Lung infection [None]
  - Pneumothorax [None]
  - Tachycardia [None]
  - Hip fracture [None]
  - Atrial fibrillation [None]
  - Asthenia [None]
  - Culture positive [None]

NARRATIVE: CASE EVENT DATE: 20160704
